FAERS Safety Report 4334552-7 (Version None)
Quarter: 2004Q2

REPORT INFORMATION
  Report Type: 
  Country: None (occurrence: None)
  Receive Date: 20040407
  Receipt Date: 20040325
  Transmission Date: 20050107
  Serious: Yes (Other)
  Sender: FDA-Public Use
  Company Number: IT-GLAXOSMITHKLINE-B0328695A

PATIENT
  Age: 39 Year
  Sex: Male

DRUGS (3)
  1. AMOXICILLIN AND CLAVULANATE POTASSIUM [Suspect]
     Indication: BRONCHITIS
     Dosage: 2G PER DAY
     Route: 048
     Dates: start: 20040227, end: 20040227
  2. ACETYLCYSTEINE [Concomitant]
     Indication: BRONCHITIS
  3. ASCORBIC ACID [Concomitant]

REACTIONS (2)
  - DIZZINESS [None]
  - SYNCOPE [None]
